FAERS Safety Report 11451249 (Version 1)
Quarter: 2015Q3

REPORT INFORMATION
  Report Type: Spontaneous
  Country: CA (occurrence: CA)
  Receive Date: 20150903
  Receipt Date: 20150903
  Transmission Date: 20151125
  Serious: Yes (Other)
  Sender: FDA-Public Use
  Company Number: CA-TEVA-591158ACC

PATIENT
  Age: 27 Year
  Sex: Female
  Weight: 108.96 kg

DRUGS (4)
  1. PROPRANOLOL [Concomitant]
     Active Substance: PROPRANOLOL\PROPRANOLOL HYDROCHLORIDE
  2. VENLAFAXINE XR [Suspect]
     Active Substance: VENLAFAXINE HYDROCHLORIDE
     Indication: ANXIETY DISORDER
     Dosage: 75 MILLIGRAM DAILY;
     Route: 048
  3. VENLAFAXINE XR [Suspect]
     Active Substance: VENLAFAXINE HYDROCHLORIDE
     Indication: HEADACHE
  4. ELTROXIN [Concomitant]
     Active Substance: LEVOTHYROXINE

REACTIONS (5)
  - Euphoric mood [Recovered/Resolved]
  - Antisocial behaviour [Recovered/Resolved]
  - Hypomania [Recovered/Resolved]
  - Logorrhoea [Recovered/Resolved]
  - Self-injurious ideation [Recovered/Resolved]
